FAERS Safety Report 8730293 (Version 3)
Quarter: 2012Q4

REPORT INFORMATION
  Report Type: 
  Country: US (occurrence: US)
  Receive Date: 20120817
  Receipt Date: 20121009
  Transmission Date: 20130627
  Serious: Yes (Other)
  Sender: FDA-Public Use
  Company Number: US-PFIZER INC-2012200830

PATIENT
  Age: 73 Year
  Sex: Female
  Weight: 86.17 kg

DRUGS (6)
  1. LIPITOR [Suspect]
     Indication: BLOOD CHOLESTEROL INCREASED
     Dosage: 10 mg, daily
     Dates: start: 199609
  2. LIPITOR [Suspect]
     Dosage: 40 mg, daily
  3. LIPITOR [Suspect]
     Dosage: 80 mg, daily
  4. ATORVASTATIN CALCIUM [Suspect]
     Indication: BLOOD CHOLESTEROL INCREASED
     Dosage: UNK
  5. HYDROCODONE [Concomitant]
     Indication: PAIN
     Dosage: UNK
  6. LEVOTHYROXINE [Concomitant]
     Indication: HORMONE REPLACEMENT THERAPY
     Dosage: 100 ug, daily

REACTIONS (2)
  - Fall [Unknown]
  - Neuropathy peripheral [Unknown]
